FAERS Safety Report 25098640 (Version 2)
Quarter: 2025Q1

REPORT INFORMATION
  Report Type: Report from Study
  Country: US (occurrence: US)
  Receive Date: 20250320
  Receipt Date: 20250327
  Transmission Date: 20250408
  Serious: Yes (Hospitalization)
  Sender: Pyros Pharmaceuticals
  Company Number: US-PYROS PHARMACEUTICALS, INC-20250300667

PATIENT
  Age: 0 Year
  Sex: Female
  Weight: 6.41 kg

DRUGS (6)
  1. VIGAFYDE [Suspect]
     Active Substance: VIGABATRIN
     Indication: Infantile spasms
     Route: 065
     Dates: start: 20250227
  2. VIGAFYDE [Suspect]
     Active Substance: VIGABATRIN
     Route: 048
     Dates: start: 202503
  3. VIGAFYDE [Suspect]
     Active Substance: VIGABATRIN
     Route: 065
     Dates: start: 202503
  4. CLONAZEPAM [Concomitant]
     Active Substance: CLONAZEPAM
     Indication: Product used for unknown indication
     Route: 065
  5. LACOSAMIDE [Concomitant]
     Active Substance: LACOSAMIDE
     Indication: Product used for unknown indication
     Route: 065
  6. OMEPRAZOLE [Concomitant]
     Active Substance: OMEPRAZOLE
     Indication: Product used for unknown indication
     Route: 065

REACTIONS (2)
  - Feeding intolerance [Recovered/Resolved]
  - Fatigue [Recovered/Resolved]

NARRATIVE: CASE EVENT DATE: 20250227
